FAERS Safety Report 15219895 (Version 1)
Quarter: 2018Q3

REPORT INFORMATION
  Report Type: Spontaneous
  Country: US (occurrence: US)
  Receive Date: 20180704
  Receipt Date: 20180704
  Transmission Date: 20181010
  Serious: Yes (Other)
  Sender: FDA-Public Use
  Company Number: None

PATIENT
  Age: 37 Year
  Sex: Female
  Weight: 87.75 kg

DRUGS (1)
  1. FLUTICASONE PROPIONATE. [Suspect]
     Active Substance: FLUTICASONE PROPIONATE

REACTIONS (6)
  - Product contamination physical [None]
  - Oropharyngeal pain [None]
  - Nasal discomfort [None]
  - Nasal injury [None]
  - Drug ineffective [None]
  - Epistaxis [None]

NARRATIVE: CASE EVENT DATE: 20180101
